FAERS Safety Report 17143511 (Version 1)
Quarter: 2019Q4

REPORT INFORMATION
  Report Type: Spontaneous
  Country: SE (occurrence: SE)
  Receive Date: 20191212
  Receipt Date: 20191212
  Transmission Date: 20200122
  Serious: Yes (Other)
  Sender: FDA-Public Use
  Company Number: SE-TEVA-2019-SE-1148967

PATIENT
  Age: 92 Year
  Sex: Male

DRUGS (6)
  1. OMECAT [Concomitant]
     Active Substance: OMEPRAZOLE
  2. ALVEDON [Concomitant]
     Active Substance: ACETAMINOPHEN
  3. FLUTIDE [Concomitant]
     Active Substance: FLUTICASONE PROPIONATE
  4. MIRTAZAPIN ACTAVIS 15 MG FILMDRAGERAD TABLETT [Suspect]
     Active Substance: MIRTAZAPINE
     Dosage: 1 TABLET FOR THE EVENING
     Route: 048
     Dates: start: 20191024, end: 20191027
  5. ATROVENT [Concomitant]
     Active Substance: IPRATROPIUM BROMIDE
  6. FOLACIN [Concomitant]

REACTIONS (2)
  - Somnolence [Recovered/Resolved]
  - Depressed level of consciousness [Recovered/Resolved]

NARRATIVE: CASE EVENT DATE: 20191026
